FAERS Safety Report 5174018-8 (Version None)
Quarter: 2006Q4

REPORT INFORMATION
  Report Type: 
  Country: None (occurrence: None)
  Receive Date: 20061214
  Receipt Date: 20060519
  Transmission Date: 20070319
  Serious: No
  Sender: FDA-Public Use
  Company Number: US-AMGEN-US180288

PATIENT
  Sex: Female

DRUGS (4)
  1. ENBREL [Suspect]
     Indication: RHEUMATOID ARTHRITIS
     Route: 058
     Dates: start: 20051101
  2. PLAQUENIL [Concomitant]
     Dates: start: 20040801
  3. ARAVA [Concomitant]
     Dates: start: 20050101
  4. ARAVA [Concomitant]
     Dates: start: 20050101

REACTIONS (1)
  - INJECTION SITE REACTION [None]
